FAERS Safety Report 26122971 (Version 1)
Quarter: 2025Q4

REPORT INFORMATION
  Report Type: Spontaneous
  Country: EU (occurrence: EU)
  Receive Date: 20251204
  Receipt Date: 20251204
  Transmission Date: 20260117
  Serious: Yes (Other)
  Sender: PFIZER
  Company Number: None

PATIENT
  Age: 24 Year
  Sex: Male
  Weight: 70 kg

DRUGS (2)
  1. CARBOPLATIN [Suspect]
     Active Substance: CARBOPLATIN
     Indication: Lung adenocarcinoma
     Dosage: 300 MG, EVERY 3 WEEKS
     Route: 042
     Dates: start: 20250701, end: 20250904
  2. PEMETREXED [Concomitant]
     Active Substance: PEMETREXED
     Indication: Lung adenocarcinoma
     Dosage: 500 MG/M2, EVERY 3 WEEKS
     Route: 042
     Dates: start: 20250701

REACTIONS (2)
  - Hepatic cytolysis [Recovered/Resolved with Sequelae]
  - Cholestasis [Recovered/Resolved with Sequelae]

NARRATIVE: CASE EVENT DATE: 20250924
